FAERS Safety Report 9552459 (Version 1)
Quarter: 2013Q3

REPORT INFORMATION
  Report Type: Spontaneous
  Country: US (occurrence: None)
  Receive Date: 20130924
  Receipt Date: 20130924
  Transmission Date: 20140515
  Serious: Yes (Disabling)
  Sender: FDA-Public Use
  Company Number: None

PATIENT
  Age: 58 Year
  Sex: Female
  Weight: 55.79 kg

DRUGS (1)
  1. ASACOL HD [Suspect]
     Indication: COLITIS
     Dosage: 2 TABS, THREE TIMES DAILY, TAKEN BY MOUTH
     Route: 048
     Dates: start: 20130610, end: 20130815

REACTIONS (3)
  - Haematochezia [None]
  - Product quality issue [None]
  - Clostridium difficile infection [None]
